FAERS Safety Report 25564613 (Version 1)
Quarter: 2025Q3

REPORT INFORMATION
  Report Type: Spontaneous
  Country: EU (occurrence: EU)
  Receive Date: 20250716
  Receipt Date: 20250716
  Transmission Date: 20251021
  Serious: Yes (Other)
  Sender: NOVARTIS
  Company Number: EU-002147023-NVSC2025DE112685

PATIENT
  Age: 45 Year
  Sex: Female

DRUGS (1)
  1. MAYZENT [Suspect]
     Active Substance: SIPONIMOD
     Indication: Multiple sclerosis
     Route: 065
     Dates: start: 2025

REACTIONS (3)
  - Porphyromonas bacteraemia [Unknown]
  - Periodontal disease [Unknown]
  - Periodontitis [Unknown]

NARRATIVE: CASE EVENT DATE: 20250101
